FAERS Safety Report 5085301-9 (Version None)
Quarter: 2006Q3

REPORT INFORMATION
  Report Type: 
  Country: None (occurrence: None)
  Receive Date: 20060822
  Receipt Date: 20060811
  Transmission Date: 20061208
  Serious: Yes (Hospitalization)
  Sender: FDA-Public Use
  Company Number: JP-SP-2006-02171

PATIENT
  Age: 79 Year
  Sex: Male

DRUGS (7)
  1. IMMUCYST [Suspect]
     Indication: BLADDER CANCER
     Route: 043
     Dates: start: 20060626, end: 20060719
  2. IMMUCYST [Suspect]
     Route: 043
     Dates: start: 20060626, end: 20060719
  3. IMMUCYST [Suspect]
     Route: 043
     Dates: start: 20060626, end: 20060719
  4. IMMUCYST [Suspect]
     Route: 043
     Dates: start: 20060626, end: 20060719
  5. CIBACEN (BENAZEPRIL HYDROCHLORIDE) [Concomitant]
  6. DEPAS (ETIZOLAM) [Concomitant]
  7. MYTEAR (ARTIFICIAL TEAR) [Concomitant]

REACTIONS (8)
  - ANOREXIA [None]
  - DYSURIA [None]
  - HAEMATURIA [None]
  - HEADACHE [None]
  - PALPITATIONS [None]
  - POLLAKIURIA [None]
  - PYREXIA [None]
  - URINARY RETENTION [None]
